FAERS Safety Report 9694987 (Version 2)
Quarter: 2014Q1

REPORT INFORMATION
  Report Type: Spontaneous
  Country: CR (occurrence: CR)
  Receive Date: 20131119
  Receipt Date: 20140102
  Transmission Date: 20141002
  Serious: Yes (Disabling, Other)
  Sender: FDA-Public Use
  Company Number: CR-AMGEN-CRISP2013081110

PATIENT
  Age: 32 Year
  Sex: Female

DRUGS (3)
  1. ENBREL [Suspect]
     Indication: RHEUMATOID ARTHRITIS
     Dosage: 50 MG, WEEKLY
     Route: 058
     Dates: start: 20130508, end: 20131113
  2. METHOTREXATE [Concomitant]
     Dosage: 15 MG, WEEKLY
     Route: 048
  3. PREDNISONE [Concomitant]
     Dosage: 7.5 MG, 1X/DAY
     Route: 048

REACTIONS (1)
  - Malignant melanoma [Recovered/Resolved]
